FAERS Safety Report 16040929 (Version 14)
Quarter: 2023Q1

REPORT INFORMATION
  Report Type: Report from Study
  Country: CA (occurrence: CA)
  Receive Date: 20190306
  Receipt Date: 20230314
  Transmission Date: 20230418
  Serious: Yes (Other)
  Sender: FDA-Public Use
  Company Number: PHHY2019CA049894

PATIENT
  Age: 52 Year
  Sex: Female

DRUGS (9)
  1. ILARIS [Suspect]
     Active Substance: CANAKINUMAB
     Indication: Muckle-Wells syndrome
     Dosage: 150 MG, EVERY 7 WEEKS
     Route: 058
     Dates: start: 20170803
  2. ILARIS [Suspect]
     Active Substance: CANAKINUMAB
     Dosage: 150 MG, EVERY 8 WEEKS
     Route: 058
     Dates: start: 20190619
  3. ILARIS [Suspect]
     Active Substance: CANAKINUMAB
     Dosage: 150 MG, EVERY 8 WEEKS (APPROXIMATELY 05 AUG 2020)
     Route: 058
     Dates: start: 202008
  4. ILARIS [Suspect]
     Active Substance: CANAKINUMAB
     Dosage: 150 MG EVERY 7 WEEKS
     Route: 058
     Dates: start: 20210810
  5. ILARIS [Suspect]
     Active Substance: CANAKINUMAB
     Dosage: 150 MG, EVERY 8 WEEKS
     Route: 058
  6. TIGER BALM [Concomitant]
     Active Substance: CAMPHOR (SYNTHETIC)\CAPSICUM OLEORESIN\MENTHOL\METHYL SALICYLATE
     Indication: Product used for unknown indication
     Dosage: UNK
     Route: 065
  7. NAPROXEN [Concomitant]
     Active Substance: NAPROXEN
     Indication: Product used for unknown indication
     Dosage: UNK
     Route: 065
     Dates: start: 2015
  8. REACTINE [Concomitant]
     Indication: Product used for unknown indication
     Dosage: 1 DOSAGE FORM, QD
     Route: 048
     Dates: start: 2010
  9. TYLENOL EXTRA STRENGTH [Concomitant]
     Active Substance: ACETAMINOPHEN
     Indication: Product used for unknown indication
     Dosage: UNK
     Route: 065
     Dates: start: 2000

REACTIONS (8)
  - Serum amyloid A protein increased [Unknown]
  - Rheumatoid arthritis [Unknown]
  - Arthralgia [Recovering/Resolving]
  - Skin irritation [Unknown]
  - Rash macular [Unknown]
  - Osteoarthritis [Unknown]
  - C-reactive protein increased [Unknown]
  - Product use issue [Unknown]

NARRATIVE: CASE EVENT DATE: 20190220
